FAERS Safety Report 9575285 (Version 1)
Quarter: 2013Q4

REPORT INFORMATION
  Report Type: Spontaneous
  Country: ES (occurrence: ES)
  Receive Date: 20131001
  Receipt Date: 20131001
  Transmission Date: 20140711
  Serious: No
  Sender: FDA-Public Use
  Company Number: ES-B.I. PHARMACEUTICALS,INC./RIDGEFIELD-2013-ES-00532ES

PATIENT
  Sex: Male

DRUGS (3)
  1. TRAJENTA [Suspect]
     Indication: DIABETES MELLITUS
     Dosage: 5 MG
     Route: 048
     Dates: start: 20130906, end: 20130909
  2. METFORMINA [Concomitant]
  3. OTHER UNESPECIFIED DRUGS [Concomitant]

REACTIONS (2)
  - Laryngeal oedema [Recovered/Resolved]
  - Testicular oedema [Recovered/Resolved]
